FAERS Safety Report 16379677 (Version 1)
Quarter: 2019Q2

REPORT INFORMATION
  Report Type: Spontaneous
  Country: US (occurrence: US)
  Receive Date: 20190531
  Receipt Date: 20190531
  Transmission Date: 20190711
  Serious: No
  Sender: FDA-Public Use
  Company Number: US-VIIV HEALTHCARE LIMITED-US2019GSK057867

PATIENT
  Age: 37 Year
  Sex: Male

DRUGS (1)
  1. LAMIVUDINE HBV [Suspect]
     Active Substance: LAMIVUDINE
     Indication: CHRONIC HEPATITIS
     Dosage: UNK
     Route: 048
     Dates: start: 20170309

REACTIONS (3)
  - Tinnitus [Unknown]
  - Hypoacusis [Unknown]
  - Vestibular disorder [Unknown]

NARRATIVE: CASE EVENT DATE: 20181001
